FAERS Safety Report 19325024 (Version 2)
Quarter: 2021Q2

REPORT INFORMATION
  Report Type: Report from Study
  Country: US (occurrence: US)
  Receive Date: 20210528
  Receipt Date: 20210603
  Transmission Date: 20210717
  Serious: Yes (Other)
  Sender: FDA-Public Use
  Company Number: US-SA-2019SA353973

PATIENT
  Age: 31 Year
  Sex: Male

DRUGS (2)
  1. ALEMTUZUMAB [Suspect]
     Active Substance: ALEMTUZUMAB
     Dosage: 12 MG, QD
     Route: 041
     Dates: start: 20171211
  2. ALEMTUZUMAB [Suspect]
     Active Substance: ALEMTUZUMAB
     Indication: MULTIPLE SCLEROSIS
     Dosage: 12 MG, QD
     Route: 041
     Dates: start: 20190130, end: 20190201

REACTIONS (8)
  - Neoplasm malignant [Unknown]
  - Malaise [Unknown]
  - Chills [Unknown]
  - Rash [Unknown]
  - Syncope [Unknown]
  - Neutrophil count abnormal [Unknown]
  - Autoimmune pancytopenia [Unknown]
  - Headache [Unknown]

NARRATIVE: CASE EVENT DATE: 20191204
